FAERS Safety Report 9518565 (Version 1)
Quarter: 2013Q3

REPORT INFORMATION
  Report Type: Spontaneous
  Country: JP (occurrence: JP)
  Receive Date: 20130912
  Receipt Date: 20130912
  Transmission Date: 20140515
  Serious: Yes (Hospitalization, Other)
  Sender: FDA-Public Use
  Company Number: PHHY2013JP099550

PATIENT
  Sex: Male

DRUGS (6)
  1. TEGRETOL [Suspect]
     Indication: DEPRESSION
     Dosage: 300 MG, DAILY
     Route: 048
     Dates: start: 1995
  2. TEGRETOL [Suspect]
     Dosage: 800 MG, DAILY (FOUR 200 MG TABLETS DAILY)
     Route: 048
     Dates: start: 200901
  3. TEGRETOL [Suspect]
     Dosage: 100 MG, IN MORNING
     Route: 048
  4. TEGRETOL [Suspect]
     Dosage: 1 DF, DAILY (DOSE REDUCED)
     Route: 048
  5. TEGRETOL [Suspect]
     Dosage: 300 MG, DAILY
     Route: 048
     Dates: end: 2011
  6. DOGMATYL [Suspect]
     Indication: GAIT DISTURBANCE
     Dosage: 1 DF, UNK

REACTIONS (14)
  - Muscle disorder [Unknown]
  - Hypokinesia [Unknown]
  - Abnormal behaviour [Unknown]
  - Musculoskeletal stiffness [Unknown]
  - Fall [Unknown]
  - Somatoform disorder [Unknown]
  - Dystonia [Unknown]
  - Dyskinesia [Unknown]
  - Feeling abnormal [Unknown]
  - Gait disturbance [Unknown]
  - Gastrointestinal sounds abnormal [Unknown]
  - Aphagia [Unknown]
  - General physical health deterioration [Recovered/Resolved]
  - Drug level decreased [Unknown]
